FAERS Safety Report 9646713 (Version 2)
Quarter: 2013Q4

REPORT INFORMATION
  Report Type: Spontaneous
  Country: US (occurrence: US)
  Receive Date: 20131027
  Receipt Date: 20131027
  Transmission Date: 20140711
  Serious: Yes (Other)
  Sender: FDA-Public Use
  Company Number: US-NAPPMUNDI-USA-2012-0082263

PATIENT
  Age: 23 Year
  Sex: Male
  Weight: 108.84 kg

DRUGS (5)
  1. OXYCONTIN TABLETS [Suspect]
     Indication: PRODUCT USED FOR UNKNOWN INDICATION
     Dosage: UNK, SEE TEXT
  2. OXYCODONE HYDROCHLORIDE (SIMILAR TO NDA 20-553) [Suspect]
     Indication: PRODUCT USED FOR UNKNOWN INDICATION
     Dosage: UNK UNK, SEE TEXT
  3. ROXICODONE [Concomitant]
     Indication: DRUG ABUSE
  4. SOMA [Concomitant]
     Indication: DRUG ABUSE
  5. ALCOHOL [Concomitant]
     Indication: SUBSTANCE ABUSE

REACTIONS (2)
  - Drug dependence [Recovering/Resolving]
  - Substance abuse [Unknown]
